FAERS Safety Report 12493570 (Version 5)
Quarter: 2016Q4

REPORT INFORMATION
  Report Type: Spontaneous
  Country: US (occurrence: US)
  Receive Date: 20160623
  Receipt Date: 20161219
  Transmission Date: 20170207
  Serious: Yes (Other)
  Sender: FDA-Public Use
  Company Number: US-PFIZER INC-2016310321

PATIENT
  Age: 53 Year
  Sex: Female
  Weight: 54 kg

DRUGS (24)
  1. VITAMIN D [Concomitant]
     Active Substance: CHOLECALCIFEROL
     Dosage: 5000 IU, 3 TIMES A WEEK
  2. PROPRANOLOL [Concomitant]
     Active Substance: PROPRANOLOL\PROPRANOLOL HYDROCHLORIDE
     Indication: BLOOD PRESSURE ABNORMAL
     Dosage: 40 MG, 1X/DAY
  3. CYMBALTA [Concomitant]
     Active Substance: DULOXETINE HYDROCHLORIDE
     Indication: MUSCLE SPASMS
     Dosage: 60 MG IN MORNING AND 30 MG ONE TIME AT NIGHT
  4. PROLIA [Concomitant]
     Active Substance: DENOSUMAB
     Indication: BONE DISORDER
     Dosage: 1 DF, UNK (1 IN 6 M)
     Dates: start: 201605
  5. TOPAMAX [Concomitant]
     Active Substance: TOPIRAMATE
     Indication: BLINDNESS
  6. IMITREX [Concomitant]
     Active Substance: SUMATRIPTAN SUCCINATE
     Indication: VISUAL IMPAIRMENT
  7. CLONAZEPAM. [Concomitant]
     Active Substance: CLONAZEPAM
     Indication: INSOMNIA
     Dosage: 1 MG, AT NIGHT
  8. CLONAZEPAM. [Concomitant]
     Active Substance: CLONAZEPAM
     Indication: DYSKINESIA
  9. LYRICA [Suspect]
     Active Substance: PREGABALIN
     Indication: FIBROMYALGIA
     Dosage: 50 MG, 3X/DAY
  10. LYRICA [Suspect]
     Active Substance: PREGABALIN
     Indication: NERVE INJURY
     Dosage: 75 MG, 3X/DAY
  11. PROPRANOLOL [Concomitant]
     Active Substance: PROPRANOLOL\PROPRANOLOL HYDROCHLORIDE
     Indication: HEADACHE
  12. PREDNISONE. [Suspect]
     Active Substance: PREDNISONE
     Indication: OSTEITIS
     Dosage: UNK
  13. TOPAMAX [Concomitant]
     Active Substance: TOPIRAMATE
     Indication: MIGRAINE
     Dosage: 200 MG, 2X/DAY
  14. REQUIP [Concomitant]
     Active Substance: ROPINIROLE HYDROCHLORIDE
     Indication: RESTLESS LEGS SYNDROME
     Dosage: 2 MG, ONCE AT NIGHT
  15. HYDROCODONE [Concomitant]
     Active Substance: HYDROCODONE
     Indication: PAIN
     Dosage: 7.5/325, 2 TIMES A DAY AT NIGHT
  16. IMITREX [Concomitant]
     Active Substance: SUMATRIPTAN SUCCINATE
     Indication: BLINDNESS
     Dosage: ONLY TOOK IT WHEN SHE FELT SHE WAS GOING TO LOSE HER VISION
     Route: 045
  17. BACLOFEN. [Concomitant]
     Active Substance: BACLOFEN
     Indication: MUSCLE RELAXANT THERAPY
     Dosage: 20 MG, UNK
  18. AMITRIPTYLINE [Concomitant]
     Active Substance: AMITRIPTYLINE
     Indication: ANXIETY
     Dosage: 100 MG, 1X/DAY
  19. AMITRIPTYLINE [Concomitant]
     Active Substance: AMITRIPTYLINE
     Indication: DEPRESSION
  20. AMITRIPTYLINE [Concomitant]
     Active Substance: AMITRIPTYLINE
     Indication: INSOMNIA
  21. SYNTHROID [Suspect]
     Active Substance: LEVOTHYROXINE SODIUM
     Indication: HYPOTHYROIDISM
     Dosage: 137 UG, 1X/DAY
     Route: 058
  22. HYDROCODONE/ACETAMINOPHEN [Suspect]
     Active Substance: ACETAMINOPHEN\HYDROCODONE
     Dosage: [HYDROCODONE 7.5][ACETAMINOPHEN 325] (2 IN 1D)
  23. CYMBALTA [Concomitant]
     Active Substance: DULOXETINE HYDROCHLORIDE
     Indication: DEPRESSION
  24. BONIVA [Suspect]
     Active Substance: IBANDRONATE SODIUM
     Indication: BONE DISORDER
     Dosage: UNK

REACTIONS (25)
  - Hand fracture [Unknown]
  - Body height decreased [Unknown]
  - Activities of daily living impaired [Unknown]
  - Foot fracture [Unknown]
  - Rotator cuff syndrome [Unknown]
  - Impaired driving ability [Unknown]
  - Muscle spasms [Unknown]
  - Vasodilatation [Unknown]
  - Drug ineffective [Unknown]
  - Impaired work ability [Unknown]
  - Upper limb fracture [Unknown]
  - Complex regional pain syndrome [Not Recovered/Not Resolved]
  - Fall [Unknown]
  - Weight decreased [Unknown]
  - Varicose vein [Unknown]
  - Osteitis [Unknown]
  - Drug dose omission [Unknown]
  - Pain [Unknown]
  - Drug effect incomplete [Unknown]
  - Fracture [Unknown]
  - Fatigue [Unknown]
  - Arthropathy [Unknown]
  - Bone disorder [Unknown]
  - Muscular weakness [Unknown]
  - Osteopenia [Unknown]

NARRATIVE: CASE EVENT DATE: 201510
